FAERS Safety Report 8483663-3 (Version None)
Quarter: 2012Q3

REPORT INFORMATION
  Report Type: 
  Country: None (occurrence: None)
  Receive Date: 20120703
  Receipt Date: 20120620
  Transmission Date: 20120928
  Serious: Yes (Other)
  Sender: FDA-Public Use
  Company Number: AT-MYLANLABS-2012S1013009

PATIENT
  Age: 21 Year
  Sex: Female
  Weight: 65 kg

DRUGS (10)
  1. NITROUS OXIDE [Concomitant]
     Indication: ANAESTHESIA PROCEDURE
     Dosage: 66% NITROUS OXIDE IN 33% OXYGEN
     Route: 065
  2. DICLOFENAC SODIUM [Concomitant]
     Indication: ANAESTHESIA PROCEDURE
     Route: 065
  3. PROPOFOL [Interacting]
     Dosage: 400 MG/HOUR
     Route: 065
  4. RANITIDINE [Interacting]
     Indication: ANAESTHESIA PROCEDURE
     Route: 065
  5. NEOSTIGMINE METHYLSULFATE [Interacting]
     Indication: ANAESTHESIA PROCEDURE
     Route: 065
  6. PROPOFOL [Interacting]
     Indication: ANAESTHESIA PROCEDURE
     Route: 040
  7. MIDAZOLAM [Interacting]
     Indication: ANAESTHESIA PROCEDURE
     Route: 048
  8. ROCURONIUM BROMIDE [Concomitant]
     Indication: ANAESTHESIA PROCEDURE
     Route: 065
  9. FENTANYL CITRATE [Suspect]
     Indication: ANAESTHESIA PROCEDURE
     Route: 065
  10. GLYCOPYRROLATE [Concomitant]
     Indication: ANAESTHESIA PROCEDURE
     Route: 065

REACTIONS (2)
  - DRUG INTERACTION [None]
  - ATRIOVENTRICULAR DISSOCIATION [None]
